FAERS Safety Report 23548886 (Version 1)
Quarter: 2024Q1

REPORT INFORMATION
  Report Type: Spontaneous
  Country: NL (occurrence: NL)
  Receive Date: 20240221
  Receipt Date: 20240221
  Transmission Date: 20240409
  Serious: Yes (Other)
  Sender: FDA-Public Use
  Company Number: NL-PFIZER INC-PV202400023824

PATIENT
  Age: 20 Year
  Sex: Male

DRUGS (1)
  1. GENOTROPIN [Suspect]
     Active Substance: SOMATROPIN
     Dosage: UNK
     Dates: start: 1993, end: 2001

REACTIONS (11)
  - Brain compression [Unknown]
  - Rheumatoid arthritis [Unknown]
  - Acromegaly [Unknown]
  - Cholelithiasis [Unknown]
  - Varicose vein [Unknown]
  - Breast disorder [Unknown]
  - Yaws [Unknown]
  - Growth disorder [Unknown]
  - Hair growth abnormal [Unknown]
  - Foot deformity [Unknown]
  - Arthropathy [Unknown]
